FAERS Safety Report 9680906 (Version 1)
Quarter: 2013Q4

REPORT INFORMATION
  Report Type: Report from Study
  Country: GR (occurrence: GR)
  Receive Date: 20131111
  Receipt Date: 20131111
  Transmission Date: 20140711
  Serious: Yes (Death, Other)
  Sender: FDA-Public Use
  Company Number: GR-ASTELLAS-2013US011661

PATIENT
  Age: 51 Year
  Sex: Male

DRUGS (1)
  1. ERLOTINIB TABLET [Suspect]
     Indication: NON-SMALL CELL LUNG CANCER
     Dosage: 150 MG, UID/QD
     Route: 065
     Dates: start: 201101

REACTIONS (7)
  - Haemoptysis [Fatal]
  - Pulmonary cavitation [Unknown]
  - Atelectasis [Unknown]
  - Pain in extremity [Unknown]
  - Gamma-glutamyltransferase increased [Unknown]
  - Weight decreased [Unknown]
  - Rash [Unknown]
